FAERS Safety Report 17562252 (Version 4)
Quarter: 2020Q3

REPORT INFORMATION
  Report Type: Spontaneous
  Country: JP (occurrence: JP)
  Receive Date: 20200319
  Receipt Date: 20200805
  Transmission Date: 20201102
  Serious: Yes (Hospitalization, Other)
  Sender: FDA-Public Use
  Company Number: JP-ASTRAZENECA-2020SE37311

PATIENT
  Age: 71 Year
  Sex: Female
  Weight: 48 kg

DRUGS (18)
  1. OLOPATADINE HYDROCHLORIDE. [Concomitant]
     Active Substance: OLOPATADINE HYDROCHLORIDE
  2. OLOPATADINE HYDROCHLORIDE. [Concomitant]
     Active Substance: OLOPATADINE HYDROCHLORIDE
  3. CRESTOR [Suspect]
     Active Substance: ROSUVASTATIN CALCIUM
     Indication: DYSLIPIDAEMIA
     Route: 048
     Dates: start: 20190606, end: 20200220
  4. AMLODIPINE [Concomitant]
     Active Substance: AMLODIPINE BESYLATE
  5. DARBEPOETIN ALFA [Concomitant]
     Active Substance: DARBEPOETIN ALFA
  6. L CARTIN [Concomitant]
     Active Substance: LEVOCARNITINE HYDROCHLORIDE
     Dates: start: 20181015, end: 20200220
  7. HISHIPHAGEN C [Concomitant]
     Dates: start: 20190919
  8. OLMETEC [Concomitant]
     Active Substance: OLMESARTAN MEDOXOMIL
  9. TENELIA [Concomitant]
     Active Substance: TENELIGLIPTIN
     Dates: start: 20190108
  10. LINZESS [Concomitant]
     Active Substance: LINACLOTIDE
     Dates: start: 20180917
  11. EVRENZO [Suspect]
     Active Substance: ROXADUSTAT
     Indication: NEPHROGENIC ANAEMIA
     Dosage: 100 MG, THRICE WEEKLY, ON TUESDAY, THURSDAY AND SATURDAY;
     Route: 048
     Dates: start: 20200220
  12. FAMOTIDINE. [Concomitant]
     Active Substance: FAMOTIDINE
  13. REMITCH OD [Concomitant]
  14. LAC?B [Concomitant]
     Active Substance: BIFIDOBACTERIUM SPP.
     Dates: start: 20190207
  15. FOLIAMIN [Concomitant]
     Active Substance: FOLIC ACID
     Dates: start: 20190718, end: 20200220
  16. MAXACALCITOL [Concomitant]
     Active Substance: MAXACALCITOL
     Dates: start: 20191031
  17. RISUMIC [Concomitant]
     Active Substance: AMEZINIUM METILSULFATE
  18. FESIN [Concomitant]
     Dates: start: 20200211

REACTIONS (5)
  - Muscular weakness [Unknown]
  - Blood bilirubin increased [Unknown]
  - Blood potassium decreased [Unknown]
  - Hypoxia [Unknown]
  - Pleural effusion [Recovering/Resolving]

NARRATIVE: CASE EVENT DATE: 20200227
